FAERS Safety Report 8941502 (Version 2)
Quarter: 2012Q4

REPORT INFORMATION
  Report Type: 
  Country: GB (occurrence: GB)
  Receive Date: 20121203
  Receipt Date: 20121228
  Transmission Date: 20130627
  Serious: Yes (Hospitalization, Other)
  Sender: FDA-Public Use
  Company Number: PHFR2012GB006210

PATIENT
  Age: 80 Year
  Sex: Male

DRUGS (2)
  1. CLOZARIL [Suspect]
     Indication: HALLUCINATION, VISUAL
     Dosage: UNK UKN, UNK
     Route: 048
     Dates: start: 20110209
  2. CLOZARIL [Suspect]
     Dosage: 25 mg, UNK
     Route: 048
     Dates: end: 20121024

REACTIONS (6)
  - Parkinson^s disease [Unknown]
  - Psychotic disorder [Unknown]
  - Pneumonia [Unknown]
  - Grand mal convulsion [Unknown]
  - Convulsion [Recovering/Resolving]
  - Cerebrovascular disorder [Unknown]
